FAERS Safety Report 8836481 (Version 2)
Quarter: 2012Q4

REPORT INFORMATION
  Report Type: 
  Country: US (occurrence: US)
  Receive Date: 20121011
  Receipt Date: 20121108
  Transmission Date: 20130627
  Serious: Yes (Hospitalization)
  Sender: FDA-Public Use
  Company Number: US-INCYTE CORPORATION-2012IN001999

PATIENT
  Age: 77 Year
  Sex: Male
  Weight: 66.21 kg

DRUGS (12)
  1. JAKAFI [Suspect]
     Indication: MYELOFIBROSIS
     Dosage: 5 mg, qd
     Route: 048
     Dates: start: 20120708, end: 20121023
  2. SIMVASTATIN [Concomitant]
  3. VITAMIN B12 [Concomitant]
  4. LISINOPRIL [Concomitant]
  5. PLAVIX [Concomitant]
  6. METOPROLOL [Concomitant]
  7. MIRTAZIPINE [Concomitant]
  8. AVODART [Concomitant]
  9. ALFUZOSIN [Concomitant]
  10. CEFUROXIME [Concomitant]
  11. PREVACID [Concomitant]
  12. ZANTAC [Concomitant]

REACTIONS (1)
  - Prostate infection [Recovered/Resolved]
